FAERS Safety Report 15395983 (Version 1)
Quarter: 2018Q3

REPORT INFORMATION
  Report Type: Spontaneous
  Country: US (occurrence: US)
  Receive Date: 20180912
  Receipt Date: 20180912
  Transmission Date: 20181010
  Serious: No
  Sender: FDA-Public Use
  Company Number: None

PATIENT

DRUGS (1)
  1. APETAMIN CYPROHEPTADINE LYSINE AND VITAMIN SYRUP [Suspect]
     Active Substance: CYPROHEPTADINE HYDROCHLORIDE\LYSINE HYDROCHLORIDE\VITAMINS

REACTIONS (5)
  - Angina pectoris [None]
  - Insomnia [None]
  - Product advertising issue [None]
  - Vomiting [None]
  - Food aversion [None]
